FAERS Safety Report 8877983 (Version 2)
Quarter: 2012Q4

REPORT INFORMATION
  Report Type: 
  Country: US (occurrence: US)
  Receive Date: 20121030
  Receipt Date: 20121119
  Transmission Date: 20130627
  Serious: No
  Sender: FDA-Public Use
  Company Number: US-JNJFOC-20121011368

PATIENT
  Sex: Male
  Weight: 86.18 kg

DRUGS (10)
  1. INVEGA SUSTENNA [Suspect]
     Indication: PRODUCT USED FOR UNKNOWN INDICATION
     Dosage: lowest dose, could not remember amount
     Route: 048
     Dates: start: 201206, end: 201207
  2. RISPERDAL [Concomitant]
     Indication: ABNORMAL BEHAVIOUR
     Dosage: was tapering off
     Route: 065
  3. PROZAC [Concomitant]
     Indication: ABNORMAL BEHAVIOUR
     Route: 065
  4. LITHIUM [Concomitant]
     Indication: ABNORMAL BEHAVIOUR
     Route: 065
  5. AMANTADINE [Concomitant]
     Indication: TIC
     Route: 065
  6. SYNTHROID [Concomitant]
     Indication: THYROID DISORDER
     Route: 065
  7. ZOCOR [Concomitant]
     Indication: BLOOD CHOLESTEROL
     Route: 065
  8. CLARITIN [Concomitant]
     Indication: MULTIPLE ALLERGIES
     Route: 065
  9. NASONEX [Concomitant]
     Indication: MULTIPLE ALLERGIES
     Route: 065
  10. ASTELIN [Concomitant]
     Indication: MULTIPLE ALLERGIES
     Route: 065

REACTIONS (2)
  - Erythema [Recovered/Resolved]
  - Urticaria [Recovered/Resolved]
